FAERS Safety Report 7984249-7 (Version None)
Quarter: 2011Q4

REPORT INFORMATION
  Report Type: 
  Country: None (occurrence: None)
  Receive Date: 20111214
  Receipt Date: 20111205
  Transmission Date: 20120403
  Serious: Yes (Hospitalization)
  Sender: FDA-Public Use
  Company Number: 1000025983

PATIENT
  Age: 36 Year
  Sex: Male

DRUGS (3)
  1. TEFLARO [Suspect]
     Indication: PNEUMONIA BACTERIAL
     Dosage: 1200 MG (600 MG,2 IN 1 D),INTRAVENOUS (NOT OTHERWISE SPECIFIED)
     Route: 042
     Dates: start: 20111125, end: 20111202
  2. SEPTRA (BACTRIM)(BACTRIM) [Concomitant]
  3. FLUCONAZOLE [Concomitant]

REACTIONS (1)
  - LEUKOPENIA [None]
